FAERS Safety Report 11856664 (Version 1)
Quarter: 2015Q4

REPORT INFORMATION
  Report Type: Spontaneous
  Country: US (occurrence: US)
  Receive Date: 20151221
  Receipt Date: 20151221
  Transmission Date: 20160305
  Serious: No
  Sender: FDA-Public Use
  Company Number: US-TAKEDA-2015TUS018120

PATIENT
  Age: 44 Year
  Sex: Female
  Weight: 90.7 kg

DRUGS (2)
  1. CONTRAVE [Suspect]
     Active Substance: BUPROPION HYDROCHLORIDE\NALTREXONE HYDROCHLORIDE
     Indication: AFFECTIVE DISORDER
  2. CONTRAVE [Suspect]
     Active Substance: BUPROPION HYDROCHLORIDE\NALTREXONE HYDROCHLORIDE
     Indication: WEIGHT CONTROL
     Dosage: 8MG/90MG, QD
     Route: 048
     Dates: start: 20151209, end: 20151209

REACTIONS (6)
  - Headache [Recovered/Resolved]
  - Off label use [Recovered/Resolved]
  - Feeling abnormal [Not Recovered/Not Resolved]
  - Aphasia [Unknown]
  - Impaired driving ability [Unknown]
  - Tachyphrenia [Unknown]

NARRATIVE: CASE EVENT DATE: 20151209
